FAERS Safety Report 7788251-X (Version None)
Quarter: 2011Q3

REPORT INFORMATION
  Report Type: 
  Country: None (occurrence: None)
  Receive Date: 20110930
  Receipt Date: 20110919
  Transmission Date: 20111222
  Serious: Yes (Hospitalization)
  Sender: FDA-Public Use
  Company Number: US-ELI_LILLY_AND_COMPANY-US201108003672

PATIENT
  Sex: Female
  Weight: 75.7 kg

DRUGS (8)
  1. POTASSIUM CHLORIDE [Concomitant]
  2. FLUDROCORTISONE ACETATE [Concomitant]
  3. LEVOXYL [Concomitant]
  4. OMEPRAZOLE [Concomitant]
  5. VYTORIN [Concomitant]
  6. ASPIRIN [Concomitant]
  7. CALCIUM +D                         /00188401/ [Concomitant]
  8. FORTEO [Suspect]
     Indication: OSTEOPOROSIS
     Dosage: 20 UG, QD
     Route: 058
     Dates: start: 20110801

REACTIONS (3)
  - DEHYDRATION [None]
  - URINARY TRACT INFECTION [None]
  - ADDISON'S DISEASE [None]
